FAERS Safety Report 21996434 (Version 1)
Quarter: 2023Q1

REPORT INFORMATION
  Report Type: Report from Study
  Country: US (occurrence: None)
  Receive Date: 20230215
  Receipt Date: 20230215
  Transmission Date: 20230417
  Serious: Yes (Other)
  Sender: FDA-Public Use
  Company Number: 2023A034725

PATIENT
  Sex: Female

DRUGS (1)
  1. FASENRA [Suspect]
     Active Substance: BENRALIZUMAB
     Indication: Asthma
     Dosage: 30UG/ML EVERY EIGHT WEEKS
     Route: 058
     Dates: start: 20220913

REACTIONS (4)
  - Asthma [Unknown]
  - Drug ineffective [Unknown]
  - Quality of life decreased [Unknown]
  - Off label use [Unknown]
